FAERS Safety Report 6676691-1 (Version None)
Quarter: 2010Q2

REPORT INFORMATION
  Report Type: 
  Country: None (occurrence: None)
  Receive Date: 20100409
  Receipt Date: 20100409
  Transmission Date: 20101027
  Serious: No
  Sender: FDA-Public Use
  Company Number: None

PATIENT
  Sex: Female
  Weight: 47.1741 kg

DRUGS (2)
  1. ACTONEL [Suspect]
     Indication: OSTEOPOROSIS
     Dosage: 35 MG. WEEKLY MOUTH
     Route: 048
  2. FOSAMAX [Suspect]
     Dosage: 10 MG.

REACTIONS (1)
  - BONE DENSITY DECREASED [None]
